FAERS Safety Report 16060111 (Version 1)
Quarter: 2019Q1

REPORT INFORMATION
  Report Type: Spontaneous
  Country: US (occurrence: US)
  Receive Date: 20190312
  Receipt Date: 20190312
  Transmission Date: 20190418
  Serious: Yes (Hospitalization, Other)
  Sender: FDA-Public Use
  Company Number: US-HETERO CORPORATE-HET2019US00288

PATIENT
  Age: 52 Year
  Sex: Female
  Weight: 97.52 kg

DRUGS (2)
  1. LEVOFLOXACIN. [Suspect]
     Active Substance: LEVOFLOXACIN
     Indication: PNEUMONIA
     Dosage: 500 MG, QD
     Route: 048
     Dates: start: 20180125, end: 20180125
  2. AZITHROMYCIN ANHYDROUS. [Suspect]
     Active Substance: AZITHROMYCIN ANHYDROUS
     Indication: INFLUENZA
     Dosage: 150 MG
     Route: 048
     Dates: start: 20180124, end: 20180125

REACTIONS (3)
  - Atrial fibrillation [Recovered/Resolved]
  - Cardiac discomfort [Recovering/Resolving]
  - Apparent death [Recovering/Resolving]

NARRATIVE: CASE EVENT DATE: 20180125
